FAERS Safety Report 17755145 (Version 3)
Quarter: 2020Q2

REPORT INFORMATION
  Report Type: Spontaneous
  Country: US (occurrence: US)
  Receive Date: 20200507
  Receipt Date: 20200511
  Transmission Date: 20200714
  Serious: Yes (Other)
  Sender: FDA-Public Use
  Company Number: NVSC2020US123045

PATIENT
  Sex: Male

DRUGS (1)
  1. BEOVU [Suspect]
     Active Substance: BROLUCIZUMAB-DBLL
     Indication: MACULAR DEGENERATION
     Dosage: UNK
     Route: 047

REACTIONS (1)
  - Subretinal fluid [Unknown]
